FAERS Safety Report 8820866 (Version 1)
Quarter: 2012Q4

REPORT INFORMATION
  Report Type: 
  Country: DE (occurrence: DE)
  Receive Date: 20121002
  Receipt Date: 20121002
  Transmission Date: 20130627
  Serious: Yes (Hospitalization)
  Sender: FDA-Public Use
  Company Number: DE-ROCHE-1139098

PATIENT
  Age: 49 Year
  Sex: Female

DRUGS (5)
  1. MABTHERA [Suspect]
     Indication: RHEUMATOID ARTHRITIS
     Route: 042
     Dates: start: 20110908, end: 20110922
  2. QUENSYL [Concomitant]
  3. PREDNISOLON [Concomitant]
  4. IDEOS [Concomitant]
  5. OSYROL [Concomitant]

REACTIONS (2)
  - Autoimmune hepatitis [Recovering/Resolving]
  - Weight decreased [Recovering/Resolving]
